FAERS Safety Report 19073823 (Version 1)
Quarter: 2021Q1

REPORT INFORMATION
  Report Type: Spontaneous
  Country: US (occurrence: US)
  Receive Date: 20210330
  Receipt Date: 20210330
  Transmission Date: 20210420
  Serious: Yes (Other)
  Sender: FDA-Public Use
  Company Number: NVSC2021US069859

PATIENT
  Age: 37 Year
  Sex: Female

DRUGS (3)
  1. ANASTROZOLE. [Concomitant]
     Active Substance: ANASTROZOLE
     Indication: OVARIAN CANCER
     Dosage: UNK
     Route: 065
  2. TRAMETINIB [Suspect]
     Active Substance: TRAMETINIB
     Indication: OVARIAN CANCER
     Dosage: UNK
     Route: 065
  3. RUCAPARIB [Concomitant]
     Active Substance: RUCAPARIB
     Indication: OVARIAN CANCER
     Dosage: UNK
     Route: 065

REACTIONS (2)
  - Product use in unapproved indication [Unknown]
  - Toxicity to various agents [Unknown]
